FAERS Safety Report 6938700-1 (Version None)
Quarter: 2010Q3

REPORT INFORMATION
  Report Type: 
  Country: None (occurrence: None)
  Receive Date: 20100824
  Receipt Date: 20100812
  Transmission Date: 20110219
  Serious: Yes (Other)
  Sender: FDA-Public Use
  Company Number: PHHY2010MX28133

PATIENT
  Age: 88 Year
  Sex: Female

DRUGS (3)
  1. RASILEZ [Suspect]
     Indication: HYPERTENSION
     Dosage: 1 TABLET (150 MG) DAILY
     Route: 048
     Dates: start: 20100101
  2. RASILEZ [Suspect]
     Dosage: 300 MG DAILY
     Route: 048
     Dates: start: 20100201
  3. APROVEL [Concomitant]
     Indication: HYPERTENSION
     Dosage: UNK
     Dates: start: 20070101

REACTIONS (4)
  - ARRHYTHMIA [None]
  - BLOOD PRESSURE INCREASED [None]
  - HYPERCHOLESTEROLAEMIA [None]
  - HYPERTRIGLYCERIDAEMIA [None]
